FAERS Safety Report 14562304 (Version 1)
Quarter: 2018Q1

REPORT INFORMATION
  Report Type: Spontaneous
  Country: DE (occurrence: DE)
  Receive Date: 20180222
  Receipt Date: 20180222
  Transmission Date: 20180509
  Serious: Yes (Hospitalization, Other)
  Sender: FDA-Public Use
  Company Number: DE-WEST-WARD PHARMACEUTICALS CORP.-DE-H14001-18-00539

PATIENT
  Age: 73 Year
  Sex: Male

DRUGS (1)
  1. CEFUROXIME. [Suspect]
     Active Substance: CEFUROXIME
     Indication: LYMPHADENOPATHY
     Dosage: ()
     Route: 065
     Dates: start: 20171123, end: 20171130

REACTIONS (5)
  - Thrombocytopenia [Not Recovered/Not Resolved]
  - Lymphadenopathy [Unknown]
  - Trichoglossia [Unknown]
  - Condition aggravated [Unknown]
  - Haematoma [Unknown]
